FAERS Safety Report 24649990 (Version 1)
Quarter: 2024Q4

REPORT INFORMATION
  Report Type: Spontaneous
  Country: BR (occurrence: BR)
  Receive Date: 20241122
  Receipt Date: 20241122
  Transmission Date: 20250114
  Serious: Yes (Other)
  Sender: AUROBINDO
  Company Number: BR-AUROBINDO-AUR-APL-2013-10264

PATIENT
  Age: 47 Year
  Sex: Male

DRUGS (20)
  1. CIPROFLOXACIN [Suspect]
     Active Substance: CIPROFLOXACIN
     Indication: Hidradenitis
     Dosage: 500 MILLIGRAM, ONCE A DAY
     Route: 065
  2. PREDNISONE [Suspect]
     Active Substance: PREDNISONE
     Indication: Hidradenitis
     Dosage: 20 MILLIGRAM, ONCE A DAY
     Route: 048
  3. PREDNISONE [Suspect]
     Active Substance: PREDNISONE
     Indication: Pyoderma gangrenosum
     Dosage: 10 MILLIGRAM, ONCE A DAY
     Route: 048
  4. INFLIXIMAB [Suspect]
     Active Substance: INFLIXIMAB
     Indication: Hidradenitis
     Dosage: 10 MILLIGRAM/KILOGRAM
     Route: 065
     Dates: start: 200906
  5. INFLIXIMAB [Suspect]
     Active Substance: INFLIXIMAB
     Dosage: 5 MILLIGRAM/KILOGRAM (EVERY 6 WEEKS)
     Route: 065
     Dates: end: 200912
  6. ISOTRETINOIN [Concomitant]
     Active Substance: ISOTRETINOIN
     Indication: Hidradenitis
     Dosage: UNK
     Route: 065
  7. TETRACYCLINE [Concomitant]
     Active Substance: TETRACYCLINE
     Indication: Hidradenitis
     Dosage: UNK
     Route: 065
  8. CEPHALEXIN [Concomitant]
     Active Substance: CEPHALEXIN
     Indication: Hidradenitis
     Dosage: UNK
     Route: 065
  9. PENICILLIN V [Concomitant]
     Active Substance: PENICILLIN V
     Indication: Hidradenitis
     Dosage: UNK
     Route: 065
  10. CLOXACILLIN [Concomitant]
     Active Substance: CLOXACILLIN
     Indication: Hidradenitis
     Dosage: UNK
     Route: 065
  11. DOXYCYCLINE [Concomitant]
     Active Substance: DOXYCYCLINE
     Indication: Hidradenitis
     Dosage: 100 MILLIGRAM, TWO TIMES A DAY
     Route: 065
  12. DOXYCYCLINE [Concomitant]
     Active Substance: DOXYCYCLINE
     Dosage: 100 MILLIGRAM, TWO TIMES A DAY
     Route: 065
  13. METRONIDAZOLE [Concomitant]
     Active Substance: METRONIDAZOLE
     Indication: Hidradenitis
     Dosage: 500 MILLIGRAM, TWO TIMES A DAY
     Route: 065
  14. METRONIDAZOLE [Concomitant]
     Active Substance: METRONIDAZOLE
     Dosage: 500 MILLIGRAM, TWO TIMES A DAY (AGAIN)
     Route: 065
  15. ETANERCEPT [Concomitant]
     Active Substance: ETANERCEPT
     Indication: Hidradenitis
     Dosage: 50 MILLIGRAM, EVERY WEEK
     Route: 065
     Dates: start: 200802
  16. ETANERCEPT [Concomitant]
     Active Substance: ETANERCEPT
     Dosage: 50 MILLIGRAM
     Route: 065
     Dates: start: 200802
  17. METHOTREXATE [Concomitant]
     Active Substance: METHOTREXATE
     Indication: Hidradenitis
     Dosage: 7.5 MILLIGRAM, EVERY WEEK
     Route: 065
  18. FINASTERIDE [Concomitant]
     Active Substance: FINASTERIDE
     Indication: Hidradenitis
     Dosage: UNK
     Route: 065
  19. ADALIMUMAB [Concomitant]
     Active Substance: ADALIMUMAB
     Indication: Hidradenitis
     Dosage: 40 MILLIGRAM, EVERY WEEK
     Route: 065
  20. ADALIMUMAB [Concomitant]
     Active Substance: ADALIMUMAB
     Dosage: 80 MILLIGRAM, EVERY WEEK
     Route: 065

REACTIONS (1)
  - Drug ineffective [Unknown]
